FAERS Safety Report 5095135-7 (Version None)
Quarter: 2006Q3

REPORT INFORMATION
  Report Type: 
  Country: None (occurrence: None)
  Receive Date: 20060830
  Receipt Date: 20060814
  Transmission Date: 20061208
  Serious: Yes (Death, Hospitalization)
  Sender: FDA-Public Use
  Company Number: 14631

PATIENT
  Age: 68 Year
  Sex: Male

DRUGS (15)
  1. CARBOPLATIN [Suspect]
     Indication: NON-SMALL CELL LUNG CANCER
     Dosage: 737 MG Q3W IV
     Route: 042
     Dates: start: 20060403, end: 20060403
  2. PACLITAXEL [Suspect]
     Indication: NON-SMALL CELL LUNG CANCER
     Dosage: 398 MG Q3W IV
     Route: 042
     Dates: start: 20060403, end: 20060403
  3. PF-3512676 [Suspect]
     Indication: NON-SMALL CELL LUNG CANCER
     Dosage: 30 MG TOTAL IV
     Route: 042
     Dates: start: 20060410, end: 20060417
  4. OXYCODONE HCL [Concomitant]
  5. ACETYLSALICYLIC ACID [Concomitant]
  6. NICOTINE [Concomitant]
  7. MEGESTROL ACETATE [Concomitant]
  8. ALBUTEROL [Concomitant]
  9. ZOMENTA [Concomitant]
  10. EPOGEN [Concomitant]
  11. IRON DEXTRAN [Concomitant]
  12. DOCUSATE SODIUM [Concomitant]
  13. LEVOFLOXACIN [Concomitant]
  14. RED BLOOD CELLS [Concomitant]
  15. TAMSULOSIN HCL [Concomitant]

REACTIONS (9)
  - DEHYDRATION [None]
  - DISEASE PROGRESSION [None]
  - GENERAL PHYSICAL HEALTH DETERIORATION [None]
  - HYPERCALCAEMIA [None]
  - LUNG CANCER METASTATIC [None]
  - METABOLIC ENCEPHALOPATHY [None]
  - METASTASES TO BONE [None]
  - METASTASES TO THORAX [None]
  - TOXIC INDUCED ENCEPHALOPATHY [None]
